FAERS Safety Report 8045637-6 (Version None)
Quarter: 2012Q1

REPORT INFORMATION
  Report Type: 
  Country: None (occurrence: None)
  Receive Date: 20120113
  Receipt Date: 20120106
  Transmission Date: 20120608
  Serious: Yes (Other)
  Sender: FDA-Public Use
  Company Number: CA-JNJFOC-20110301585

PATIENT

DRUGS (2)
  1. ACETAMINOPHEN [Suspect]
     Indication: EXPOSURE DURING BREAST FEEDING
     Route: 048
  2. ACETAMINOPHEN [Suspect]
     Route: 048

REACTIONS (2)
  - BREAST FEEDING [None]
  - DEPRESSED LEVEL OF CONSCIOUSNESS [None]
